FAERS Safety Report 5350725-9 (Version None)
Quarter: 2007Q2

REPORT INFORMATION
  Report Type: 
  Country: None (occurrence: None)
  Receive Date: 20070606
  Receipt Date: 20070606
  Transmission Date: 20071010
  Serious: No
  Sender: FDA-Public Use
  Company Number: None

PATIENT
  Age: 64 Year
  Sex: Male
  Weight: 146.0582 kg

DRUGS (1)
  1. LEVAQUIN [Suspect]
     Indication: DIAGNOSTIC PROCEDURE
     Dosage: 1000MG BEFORE AND AFTER PO
     Route: 048
     Dates: start: 20070424, end: 20070424

REACTIONS (3)
  - DRUG HYPERSENSITIVITY [None]
  - LYMPHADENOPATHY [None]
  - URTICARIA [None]
